FAERS Safety Report 8556202-6 (Version None)
Quarter: 2012Q3

REPORT INFORMATION
  Report Type: 
  Country: None (occurrence: None)
  Receive Date: 20120719
  Receipt Date: 20120709
  Transmission Date: 20120928
  Serious: Yes (Other)
  Sender: FDA-Public Use
  Company Number: 2012P1048755

PATIENT
  Age: 28 Year
  Sex: Female

DRUGS (5)
  1. VINCRISTINE [Suspect]
     Indication: ACUTE LYMPHOCYTIC LEUKAEMIA
     Dosage: 1.3 MG/M2;
  2. PREDNISOLONE [Suspect]
     Indication: ACUTE LYMPHOCYTIC LEUKAEMIA
     Dosage: 60 MG/M2;
  3. L-ASPARAGINASE (NO PREF. NAME) [Suspect]
     Indication: ACUTE LYMPHOCYTIC LEUKAEMIA
     Dosage: 3000 U/M2;
  4. CYCLOPHOSPHAMIDE [Concomitant]
  5. DAUNORUBICIN HCL [Concomitant]

REACTIONS (15)
  - HEPATIC ENZYME INCREASED [None]
  - ALLOGENIC BONE MARROW TRANSPLANTATION THERAPY [None]
  - SOMNOLENCE [None]
  - ILEUS PARALYTIC [None]
  - GRAND MAL CONVULSION [None]
  - LOSS OF CONSCIOUSNESS [None]
  - BLOOD PRESSURE INCREASED [None]
  - VISUAL ACUITY REDUCED [None]
  - POSTERIOR REVERSIBLE ENCEPHALOPATHY SYNDROME [None]
  - MUSCULAR WEAKNESS [None]
  - CYTOTOXIC OEDEMA [None]
  - ABDOMINAL PAIN [None]
  - VASOGENIC CEREBRAL OEDEMA [None]
  - GAIT DISTURBANCE [None]
  - COAGULOPATHY [None]
